FAERS Safety Report 18572964 (Version 1)
Quarter: 2020Q4

REPORT INFORMATION
  Report Type: Spontaneous
  Country: TW (occurrence: TW)
  Receive Date: 20201203
  Receipt Date: 20201203
  Transmission Date: 20210114
  Serious: Yes (Other)
  Sender: FDA-Public Use
  Company Number: TW-LUPIN PHARMACEUTICALS INC.-2020-09636

PATIENT
  Age: 68 Year
  Sex: Female

DRUGS (6)
  1. IVERMECTIN. [Concomitant]
     Active Substance: IVERMECTIN
     Indication: ACUTE RESPIRATORY DISTRESS SYNDROME
  2. TOCILIZUMAB. [Concomitant]
     Active Substance: TOCILIZUMAB
     Indication: COVID-19
  3. TOCILIZUMAB. [Concomitant]
     Active Substance: TOCILIZUMAB
     Indication: ACUTE RESPIRATORY DISTRESS SYNDROME
     Dosage: 240 MILLIGRAM, SINGLE (SINGLE DOSE)
     Route: 065
  4. HYDROXYCHLOROQUINE [Suspect]
     Active Substance: HYDROXYCHLOROQUINE
     Indication: COVID-19
     Dosage: UNK
     Route: 065
  5. AZITHROMYCIN ANHYDROUS. [Suspect]
     Active Substance: AZITHROMYCIN ANHYDROUS
     Indication: COVID-19
     Dosage: UNK
     Route: 065
  6. IVERMECTIN. [Concomitant]
     Active Substance: IVERMECTIN
     Indication: COVID-19
     Dosage: 12 MILLIGRAM, SINGLE (SINGLE DOSE)
     Route: 065

REACTIONS (1)
  - Off label use [Unknown]
